FAERS Safety Report 20632640 (Version 2)
Quarter: 2022Q3

REPORT INFORMATION
  Report Type: Spontaneous
  Country: DE (occurrence: DE)
  Receive Date: 20220324
  Receipt Date: 20220801
  Transmission Date: 20221027
  Serious: Yes (Hospitalization)
  Sender: FDA-Public Use
  Company Number: DE-NOVARTISPH-NVSC2022DE064507

PATIENT
  Age: 85 Year
  Sex: Female

DRUGS (12)
  1. CARBOPLATIN [Suspect]
     Active Substance: CARBOPLATIN
     Indication: Non-small cell lung cancer
     Dosage: 350 MG, 21
     Route: 042
     Dates: start: 20220203
  2. PACLITAXEL [Suspect]
     Active Substance: PACLITAXEL
     Indication: Non-small cell lung cancer
     Dosage: 320 MG
     Route: 065
  3. NIVOLUMAB [Suspect]
     Active Substance: NIVOLUMAB
     Indication: Non-small cell lung cancer
     Dosage: 360 MG, 21
     Route: 042
     Dates: start: 20220203
  4. IPILIMUMAB [Suspect]
     Active Substance: IPILIMUMAB
     Indication: Non-small cell lung cancer
     Dosage: 78 MILLIGRAM, 42
     Route: 042
     Dates: start: 20220203
  5. BROTIZOLAN [Concomitant]
     Indication: Product used for unknown indication
     Dosage: UNK
     Route: 065
  6. DALTEPARIN [Concomitant]
     Active Substance: DALTEPARIN
     Indication: Prophylaxis
     Dosage: UNK
     Route: 065
  7. ALLOPURINOL [Concomitant]
     Active Substance: ALLOPURINOL
     Indication: Product used for unknown indication
     Dosage: UNK
     Route: 065
  8. BISOPROLOL [Concomitant]
     Active Substance: BISOPROLOL
     Indication: Product used for unknown indication
     Dosage: UNK
     Route: 065
  9. AMLODIPINE [Concomitant]
     Active Substance: AMLODIPINE BESYLATE
     Indication: Product used for unknown indication
     Dosage: UNK
     Route: 065
  10. CANDESARTAN [Concomitant]
     Active Substance: CANDESARTAN
     Indication: Product used for unknown indication
     Dosage: UNK
     Route: 065
  11. MOXONIDINE [Concomitant]
     Active Substance: MOXONIDINE
     Indication: Product used for unknown indication
     Dosage: UNK
     Route: 065
  12. TORSEMIDE [Concomitant]
     Active Substance: TORSEMIDE
     Indication: Product used for unknown indication
     Dosage: UNK
     Route: 065

REACTIONS (1)
  - Abdominal pain [Recovered/Resolved]

NARRATIVE: CASE EVENT DATE: 20220208
